FAERS Safety Report 8395127 (Version 8)
Quarter: 2012Q4

REPORT INFORMATION
  Report Type: Report from Study
  Country: BD (occurrence: BD)
  Receive Date: 20120208
  Receipt Date: 20120828
  Transmission Date: 20130627
  Serious: Yes (Other)
  Sender: FDA-Public Use
  Company Number: BD-ASTELLAS-2012US001512

PATIENT
  Age: 14 Year
  Sex: Female
  Weight: 40 kg

DRUGS (2)
  1. AMBISOME [Suspect]
     Indication: VISCERAL LEISHMANIASIS
     Dosage: 200 mg, Unknown/D
     Route: 065
     Dates: start: 20101220
  2. ALBENDAZOLE [Concomitant]
     Indication: PRODUCT USED FOR UNKNOWN INDICATION
     Dosage: 400 mg, Unknown/D
     Route: 065
     Dates: start: 20101220, end: 20101220

REACTIONS (3)
  - Myopathy [Unknown]
  - Asthenia [Unknown]
  - Arthralgia [Unknown]
